FAERS Safety Report 8951251 (Version 1)
Quarter: 2012Q4

REPORT INFORMATION
  Report Type: 
  Country: BR (occurrence: BR)
  Receive Date: 20121207
  Receipt Date: 20121207
  Transmission Date: 20130627
  Serious: Yes (Other)
  Sender: FDA-Public Use
  Company Number: BR-AMGEN-BRASP2012059322

PATIENT
  Age: 48 Year
  Sex: Female
  Weight: 61 kg

DRUGS (6)
  1. ENBREL [Suspect]
     Indication: RHEUMATOID ARTHRITIS
     Dosage: 50 mg, once weekly
     Route: 058
     Dates: start: 201105, end: 201207
  2. SIMVASTATIN [Concomitant]
     Indication: BLOOD CHOLESTEROL INCREASED
     Dosage: 20 mg, UNK
  3. OMEPRAZOLE [Concomitant]
     Dosage: UNK
  4. MAREVAN [Concomitant]
     Indication: PERIPHERAL VASCULAR DISORDER
     Dosage: 5 mg, UNK
  5. CEBRALAT [Concomitant]
     Indication: PERIPHERAL VASCULAR DISORDER
     Dosage: 100 mg, UNK
  6. AAS [Concomitant]
     Indication: PERIPHERAL VASCULAR DISORDER
     Dosage: UNK

REACTIONS (4)
  - Gout [Not Recovered/Not Resolved]
  - Skin discolouration [Not Recovered/Not Resolved]
  - Peripheral arterial occlusive disease [Unknown]
  - Pain in extremity [Not Recovered/Not Resolved]
